FAERS Safety Report 10271027 (Version 1)
Quarter: 2014Q1

REPORT INFORMATION
  Report Type: Spontaneous
  Country: US (occurrence: None)
  Receive Date: 20140306
  Receipt Date: 20140306
  Transmission Date: 20141002
  Serious: Yes (Other)
  Sender: FDA-Public Use
  Company Number: 163-21880-13082532

PATIENT
  Age: 82 Year
  Sex: Male
  Weight: 76 kg

DRUGS (10)
  1. LISINOPRIL HCTZ (ZESTORETIC) (TABLETS) [Concomitant]
  2. TEMAZEPAM (TEMAZEPAM) (CAPSULES) [Concomitant]
  3. COD LIVER OIL (COD-LIVER OIL) (UNKNOWN) [Concomitant]
  4. GNP VITAMIN D (ERGOCALCIFEROL) (TABLETS) [Concomitant]
  5. VESICARE (SOLIFENACIN SUCCINATE) (TABLETS) [Concomitant]
  6. AVAPRO (IRBESARTAN) (TABLETS) [Concomitant]
  7. REVLIMID (LENALIDOMIDE) (10 MILLIGRAM, CAPSULES) [Suspect]
     Indication: PLASMA CELL MYELOMA
     Dosage: 10 MG, 21 IN 21 D, PO
     Route: 048
     Dates: start: 201106
  8. DEXAMETHASONE (DEXAMETHASONE) (TABLETS) [Concomitant]
  9. ZOMETA (ZOLEDRONIC ACID) (UNKNOWN) [Concomitant]
  10. TRAMADOL HCL (TRAMADOL HYDROCHLORIDE) (TABLETS) [Concomitant]

REACTIONS (1)
  - Plasma cell myeloma [None]
